FAERS Safety Report 21905083 (Version 2)
Quarter: 2024Q2

REPORT INFORMATION
  Report Type: Spontaneous
  Country: GR (occurrence: GR)
  Receive Date: 20230124
  Receipt Date: 20240607
  Transmission Date: 20240715
  Serious: Yes (Hospitalization)
  Sender: FDA-Public Use
  Company Number: GR-ABBVIE-21K-066-4204696-00

PATIENT
  Age: 64 Year
  Sex: Female
  Weight: 72 kg

DRUGS (8)
  1. ADALIMUMAB [Suspect]
     Active Substance: ADALIMUMAB\ISOPROPYL ALCOHOL
     Indication: Rheumatoid arthritis
     Dosage: UNK
     Route: 058
     Dates: start: 202103, end: 202109
  2. RINVOQ [Suspect]
     Active Substance: UPADACITINIB
     Indication: Rheumatoid arthritis
     Dosage: 15 MILLIGRAM, QD
     Route: 048
     Dates: start: 20210922, end: 20220618
  3. RINVOQ [Suspect]
     Active Substance: UPADACITINIB
     Dosage: 15 MILLIGRAM, QD
     Route: 048
     Dates: start: 20220628
  4. TOUJEO [Concomitant]
     Active Substance: INSULIN GLARGINE
     Indication: Diabetes mellitus
     Dosage: 300 INTERNATIONAL UNIT, QD
     Route: 065
     Dates: start: 20140101
  5. ROSUVASTATIN CALCIUM [Concomitant]
     Active Substance: ROSUVASTATIN CALCIUM
     Indication: Dyslipidaemia
     Dosage: 20 MILLIGRAM, QD
     Route: 048
     Dates: start: 20141101
  6. ASPIRIN [Concomitant]
     Active Substance: ASPIRIN
     Indication: Hypertension
     Dosage: 100 MILLIGRAM, QD
     Route: 048
     Dates: start: 20140511
  7. JANUMET [Concomitant]
     Active Substance: METFORMIN HYDROCHLORIDE\SITAGLIPTIN PHOSPHATE
     Indication: Diabetes mellitus
     Dosage: 850 MILLIGRAM, QD
     Route: 048
     Dates: start: 20140901
  8. IPERTAS [Concomitant]
     Indication: Hypertension
     Dosage: 10 MILLIGRAM, QD
     Route: 048
     Dates: start: 20140311

REACTIONS (5)
  - Hyponatraemia [Recovered/Resolved]
  - Hypertransaminasaemia [Recovered/Resolved]
  - Neck pain [Recovering/Resolving]
  - Drug ineffective [Unknown]
  - Respiratory tract infection [Recovering/Resolving]

NARRATIVE: CASE EVENT DATE: 20211210
